FAERS Safety Report 6644198-3 (Version None)
Quarter: 2010Q1

REPORT INFORMATION
  Report Type: 
  Country: None (occurrence: None)
  Receive Date: 20100319
  Receipt Date: 20100319
  Transmission Date: 20100710
  Serious: Yes (Life-Threatening, Hospitalization, Disabling)
  Sender: FDA-Public Use
  Company Number: None

PATIENT
  Age: 55 Year
  Sex: Male

DRUGS (1)
  1. GEODON [Suspect]
     Dosage: 80 MG BID PO
     Route: 048
     Dates: start: 20080813, end: 20080926

REACTIONS (2)
  - RENAL FAILURE ACUTE [None]
  - TREATMENT NONCOMPLIANCE [None]
